FAERS Safety Report 7217908-4 (Version None)
Quarter: 2011Q1

REPORT INFORMATION
  Report Type: 
  Country: None (occurrence: None)
  Receive Date: 20110110
  Receipt Date: 20101228
  Transmission Date: 20110831
  Serious: Yes (Other)
  Sender: FDA-Public Use
  Company Number: US-ABBOTT-10P-163-0694001-00

PATIENT
  Age: 40 Year
  Sex: Male

DRUGS (4)
  1. ENALAPRIL [Concomitant]
     Indication: HYPERTENSION
  2. HYDROCHLOROTHIAZIDE [Concomitant]
     Indication: HYPERTENSION
     Route: 048
  3. CYMBALTA [Concomitant]
     Indication: DEPRESSION
  4. HUMIRA [Suspect]
     Indication: ANKYLOSING SPONDYLITIS
     Route: 048
     Dates: start: 20100825

REACTIONS (5)
  - CHEST PAIN [None]
  - BLOOD CHOLESTEROL INCREASED [None]
  - FLATULENCE [None]
  - CARDIAC STRESS TEST ABNORMAL [None]
  - ABDOMINAL DISCOMFORT [None]
